FAERS Safety Report 10005187 (Version 1)
Quarter: 2014Q1

REPORT INFORMATION
  Report Type: Spontaneous
  Country: US (occurrence: US)
  Receive Date: 20140312
  Receipt Date: 20140312
  Transmission Date: 20141002
  Serious: Yes (Other)
  Sender: FDA-Public Use
  Company Number: PHHY2014US026444

PATIENT
  Sex: Female

DRUGS (8)
  1. TACROLIMUS [Suspect]
     Indication: IMMUNOSUPPRESSION
     Dosage: 1.5 MG, BID
  2. TACROLIMUS [Suspect]
     Dosage: 0.5 MG, BID
     Route: 048
  3. AMLODIPINE [Suspect]
     Indication: BLOOD PRESSURE INCREASED
     Dosage: 10 MG, DAILY
  4. ENALAPRIL [Suspect]
     Indication: BLOOD PRESSURE INCREASED
     Dosage: 5 MG, DAILY
  5. METOPROLOL [Suspect]
     Indication: BLOOD PRESSURE INCREASED
     Dosage: 200 MG, DAILY
  6. GANCICLOVIR [Concomitant]
     Indication: CYTOMEGALOVIRUS INFECTION
     Route: 042
  7. AZATHIOPRINE [Concomitant]
     Indication: IMMUNOSUPPRESSION
     Dosage: 50 MG, DAILY
  8. PREDNISONE [Concomitant]
     Indication: IMMUNOSUPPRESSION
     Dosage: 10 MG, DAILY

REACTIONS (4)
  - Posterior reversible encephalopathy syndrome [Recovered/Resolved]
  - Grand mal convulsion [Recovered/Resolved]
  - Brain oedema [Recovered/Resolved]
  - Blood pressure increased [Unknown]
